FAERS Safety Report 24323091 (Version 1)
Quarter: 2024Q3

REPORT INFORMATION
  Report Type: Spontaneous
  Country: US (occurrence: None)
  Receive Date: 20240913
  Receipt Date: 20240913
  Transmission Date: 20241017
  Serious: Yes (Hospitalization)
  Sender: Public
  Company Number: None

PATIENT
  Sex: Female

DRUGS (1)
  1. LENALIDOMIDE [Suspect]
     Active Substance: LENALIDOMIDE
     Indication: Plasma cell myeloma refractory
     Dosage: OTHER FREQUENCY : DAILY 21 OF 28 DAYS;?
     Route: 048
     Dates: start: 20240227

REACTIONS (2)
  - Pulmonary embolism [None]
  - Therapy interrupted [None]
